FAERS Safety Report 4703118-9 (Version None)
Quarter: 2005Q2

REPORT INFORMATION
  Report Type: 
  Country: None (occurrence: None)
  Receive Date: 20050629
  Receipt Date: 20050622
  Transmission Date: 20051028
  Serious: Yes (Hospitalization)
  Sender: FDA-Public Use
  Company Number: JPKYO-S-20050013

PATIENT
  Age: 67 Year
  Sex: Male

DRUGS (7)
  1. NAVELBINE [Suspect]
     Dosage: 25MG PER DAY
     Route: 042
     Dates: start: 20050203
  2. GEMZAR [Suspect]
     Dosage: 20MG PER DAY
     Route: 042
     Dates: start: 20050203
  3. MUCOSOLVAN [Concomitant]
  4. MEDICON [Concomitant]
  5. CODEINE PHOSPHATE [Concomitant]
  6. NASEA [Concomitant]
  7. SEROTONE [Concomitant]

REACTIONS (4)
  - ARRHYTHMIA [None]
  - MALAISE [None]
  - PALPITATIONS [None]
  - SUPRAVENTRICULAR EXTRASYSTOLES [None]
